FAERS Safety Report 6304981-0 (Version None)
Quarter: 2009Q3

REPORT INFORMATION
  Report Type: 
  Country: None (occurrence: None)
  Receive Date: 20090811
  Receipt Date: 20090804
  Transmission Date: 20100115
  Serious: Yes (Other)
  Sender: FDA-Public Use
  Company Number: JP-MERCK-0908USA01089

PATIENT

DRUGS (1)
  1. PEPCID [Suspect]
     Route: 048

REACTIONS (2)
  - MYOCARDITIS [None]
  - PERICARDIAL EFFUSION [None]
